FAERS Safety Report 7629062-5 (Version None)
Quarter: 2011Q3

REPORT INFORMATION
  Report Type: 
  Country: None (occurrence: None)
  Receive Date: 20110722
  Receipt Date: 20110718
  Transmission Date: 20111222
  Serious: Yes (Hospitalization)
  Sender: FDA-Public Use
  Company Number: US-B.I. PHARMACEUTICALS,INC./RIDGEFIELD-2011-BP-17916BP

PATIENT
  Sex: Female

DRUGS (13)
  1. POTASSIUM [Concomitant]
     Indication: MINERAL SUPPLEMENTATION
  2. SPIRIVA [Suspect]
     Route: 055
     Dates: start: 20110501
  3. LISINOPRIL [Concomitant]
     Indication: HYPERTENSION
  4. MUCINEX [Concomitant]
     Indication: CHRONIC OBSTRUCTIVE PULMONARY DISEASE
  5. ALBUTEROL SULFATE AUTOHALER [Concomitant]
     Indication: CHRONIC OBSTRUCTIVE PULMONARY DISEASE
  6. LANTUS [Concomitant]
     Indication: DIABETES MELLITUS
  7. OXYGEN [Concomitant]
     Indication: CHRONIC OBSTRUCTIVE PULMONARY DISEASE
  8. GABAPENTIN [Concomitant]
     Indication: MYALGIA
  9. FORADIL [Concomitant]
     Indication: CHRONIC OBSTRUCTIVE PULMONARY DISEASE
  10. SPIRIVA [Suspect]
     Indication: CHRONIC OBSTRUCTIVE PULMONARY DISEASE
     Dosage: 18 MCG
     Route: 055
     Dates: end: 20110501
  11. THEOPHYLLINE [Concomitant]
     Indication: CHRONIC OBSTRUCTIVE PULMONARY DISEASE
  12. NOVOLOG [Concomitant]
     Indication: DIABETES MELLITUS
  13. FUROSEMIDE [Concomitant]
     Indication: OEDEMA PERIPHERAL

REACTIONS (1)
  - DYSPNOEA [None]
